FAERS Safety Report 8762137 (Version 7)
Quarter: 2014Q4

REPORT INFORMATION
  Report Type: Report from Study
  Country: US (occurrence: US)
  Receive Date: 20120830
  Receipt Date: 20141104
  Transmission Date: 20150529
  Serious: Yes (Life-Threatening, Hospitalization, Other)
  Sender: FDA-Public Use
  Company Number: US-ACTELION-A-US2012-70048

PATIENT
  Age: 47 Year
  Sex: Female

DRUGS (30)
  1. VELETRI [Suspect]
     Active Substance: EPOPROSTENOL
     Dosage: 65 NG/KG, PER MIN
     Route: 042
     Dates: start: 20120816
  2. VELETRI [Suspect]
     Active Substance: EPOPROSTENOL
     Dosage: 50 NG/KG, PER MIN
     Route: 042
  3. SILDENAFIL. [Concomitant]
     Active Substance: SILDENAFIL
  4. CITALOPRAM [Concomitant]
     Active Substance: CITALOPRAM HYDROBROMIDE
  5. LEVOTHYROXINE [Concomitant]
     Active Substance: LEVOTHYROXINE
     Dosage: UNK
     Dates: start: 200306
  6. FLUTICASONE [Concomitant]
     Active Substance: FLUTICASONE\FLUTICASONE PROPIONATE
     Dosage: UNK
     Dates: start: 20140425
  7. DOPAMINE [Concomitant]
     Active Substance: DOPAMINE\DOPAMINE HYDROCHLORIDE
  8. DIGOXEN [Concomitant]
     Active Substance: DIGOXIN
  9. EPOETIN [Concomitant]
     Active Substance: ERYTHROPOIETIN
  10. ALDACTONE [Concomitant]
     Active Substance: SPIRONOLACTONE
  11. CALCIUM GLUCONATE. [Concomitant]
     Active Substance: CALCIUM GLUCONATE
  12. REVATIO [Suspect]
     Active Substance: SILDENAFIL CITRATE
     Indication: PULMONARY ARTERIAL HYPERTENSION
     Dosage: 60 MG, QD
     Route: 048
     Dates: start: 200707, end: 20140910
  13. NORCO [Concomitant]
     Active Substance: ACETAMINOPHEN\HYDROCODONE BITARTRATE
  14. VELETRI [Suspect]
     Active Substance: EPOPROSTENOL
     Indication: PULMONARY ARTERIAL HYPERTENSION
     Dosage: 69 NG/KG, PER MIN
     Route: 042
     Dates: start: 20110926
  15. LASIX [Concomitant]
     Active Substance: FUROSEMIDE
  16. METOLAZONE. [Concomitant]
     Active Substance: METOLAZONE
  17. CELEXA [Concomitant]
     Active Substance: CITALOPRAM HYDROBROMIDE
  18. PEPCID [Concomitant]
     Active Substance: FAMOTIDINE
  19. ANTARA [Concomitant]
     Active Substance: FENOFIBRATE
  20. OXYGEN. [Concomitant]
     Active Substance: OXYGEN
  21. ASCORBIC ACID. [Concomitant]
     Active Substance: ASCORBIC ACID
  22. MS CONTIN [Concomitant]
     Active Substance: MORPHINE SULFATE
  23. SYNTHROID [Concomitant]
     Active Substance: LEVOTHYROXINE SODIUM
  24. CETIRIZINE [Concomitant]
     Active Substance: CETIRIZINE HYDROCHLORIDE
     Dosage: UNK
     Dates: start: 20140425
  25. LETAIRIS [Suspect]
     Active Substance: AMBRISENTAN
     Indication: PULMONARY ARTERIAL HYPERTENSION
     Dosage: 10 MG, QD
     Route: 048
     Dates: start: 200710
  26. ARANESP [Concomitant]
     Active Substance: DARBEPOETIN ALFA
  27. PRILOSEC [Concomitant]
     Active Substance: OMEPRAZOLE MAGNESIUM
  28. CALCIUM + VITAMIN D [Concomitant]
     Active Substance: CALCIUM\VITAMIN D
  29. VELETRI [Suspect]
     Active Substance: EPOPROSTENOL
     Dosage: 60 NG/KG, PER MIN
     Route: 042
     Dates: start: 20120817
  30. FERROUS SULFATE [Concomitant]
     Active Substance: FERROUS SULFATE\FERROUS SULFATE, DRIED

REACTIONS (33)
  - Blood potassium increased [Unknown]
  - Hypercapnia [Unknown]
  - Oxygen consumption increased [Unknown]
  - Respiratory failure [Unknown]
  - Abdominal pain upper [Unknown]
  - Abdominal distension [Unknown]
  - Weight increased [Unknown]
  - N-terminal prohormone brain natriuretic peptide increased [Unknown]
  - Abdominal pain [Unknown]
  - Renal failure [Unknown]
  - Device issue [Unknown]
  - Fluid overload [Unknown]
  - Culture urine positive [Unknown]
  - Sepsis [Unknown]
  - Hepatosplenomegaly [Unknown]
  - Ascites [Unknown]
  - White blood cell count increased [Unknown]
  - Dyspnoea exertional [Unknown]
  - Pulmonary hypertension [Unknown]
  - Haemodialysis [Unknown]
  - Pneumonia staphylococcal [Recovered/Resolved]
  - Sputum culture positive [Recovered/Resolved]
  - Nodal arrhythmia [Unknown]
  - Cholelithiasis [Unknown]
  - Device leakage [Unknown]
  - Back pain [Unknown]
  - Dizziness [Unknown]
  - Clostridium difficile colitis [Recovered/Resolved]
  - Oedema peripheral [Unknown]
  - Oedema [Unknown]
  - Renal cyst [Unknown]
  - Urinary tract infection [Unknown]
  - Chest pain [Unknown]

NARRATIVE: CASE EVENT DATE: 201206
